FAERS Safety Report 8328670-6 (Version None)
Quarter: 2012Q2

REPORT INFORMATION
  Report Type: 
  Country: None (occurrence: None)
  Receive Date: 20120502
  Receipt Date: 20120425
  Transmission Date: 20120825
  Serious: Yes (Disabling)
  Sender: FDA-Public Use
  Company Number: GB-TEVA-334862ISR

PATIENT
  Age: 91 Year
  Sex: Male

DRUGS (5)
  1. FUROSEMIDE [Concomitant]
     Route: 048
  2. WARFARIN SODIUM [Concomitant]
     Indication: ATRIAL FIBRILLATION
  3. BISOPROLOL FUMARATE [Concomitant]
     Route: 048
  4. FERROUS FUMARATE [Concomitant]
     Dosage: 420 MILLIGRAM;
     Route: 048
  5. LEVETIRACETAM [Suspect]
     Indication: CEREBRAL INFARCTION
     Dosage: 1500 MILLIGRAM;
     Route: 048
     Dates: end: 20120405

REACTIONS (1)
  - MYOCLONUS [None]
